FAERS Safety Report 13815531 (Version 1)
Quarter: 2017Q3

REPORT INFORMATION
  Report Type: Spontaneous
  Country: GB (occurrence: GB)
  Receive Date: 20170731
  Receipt Date: 20170731
  Transmission Date: 20171127
  Serious: Yes (Other)
  Sender: FDA-Public Use
  Company Number: GB-MYLANLABS-2017M1044585

PATIENT

DRUGS (4)
  1. MIRTAZAPINE. [Concomitant]
     Active Substance: MIRTAZAPINE
  2. DIAZEPAM. [Concomitant]
     Active Substance: DIAZEPAM
  3. BUSPIRONE [Suspect]
     Active Substance: BUSPIRONE HYDROCHLORIDE
     Indication: ANXIETY
     Route: 048
     Dates: start: 20170701, end: 20170707
  4. FLUANXOL                           /00109702/ [Concomitant]
     Active Substance: FLUPENTIXOL

REACTIONS (4)
  - Depression [Unknown]
  - Anxiety [Unknown]
  - Suicidal ideation [Unknown]
  - Condition aggravated [Unknown]

NARRATIVE: CASE EVENT DATE: 20170702
